FAERS Safety Report 4930658-X (Version None)
Quarter: 2006Q1

REPORT INFORMATION
  Report Type: 
  Country: None (occurrence: None)
  Receive Date: 20060227
  Receipt Date: 20060217
  Transmission Date: 20060701
  Serious: Yes (Hospitalization)
  Sender: FDA-Public Use
  Company Number: CHPA2006US02029

PATIENT
  Age: 63 Year
  Sex: Female
  Weight: 65.8 kg

DRUGS (1)
  1. EXCEDRIN (MIGRAINE) [Suspect]
     Indication: MIGRAINE
     Dosage: ORAL
     Route: 048

REACTIONS (4)
  - ALOPECIA [None]
  - ANXIETY [None]
  - IRON DEFICIENCY [None]
  - WEIGHT INCREASED [None]
